FAERS Safety Report 14056659 (Version 1)
Quarter: 2017Q4

REPORT INFORMATION
  Report Type: Spontaneous
  Country: CM (occurrence: CM)
  Receive Date: 20171006
  Receipt Date: 20171006
  Transmission Date: 20180321
  Serious: Yes (Other)
  Sender: FDA-Public Use
  Company Number: CM-PFIZER INC-2017429224

PATIENT

DRUGS (1)
  1. ARTOTEC [Suspect]
     Active Substance: DICLOFENAC SODIUM\MISOPROSTOL
     Dosage: 75 MG, UNK

REACTIONS (4)
  - Vertigo [Unknown]
  - Haemorrhage [Unknown]
  - Asthenia [Unknown]
  - Dizziness [Unknown]
